FAERS Safety Report 19488108 (Version 1)
Quarter: 2021Q3

REPORT INFORMATION
  Report Type: Spontaneous
  Country: US (occurrence: US)
  Receive Date: 20210702
  Receipt Date: 20210702
  Transmission Date: 20211014
  Serious: Yes (Hospitalization, Other)
  Sender: FDA-Public Use
  Company Number: US-TAKEDA-2021TUS039525

PATIENT

DRUGS (1)
  1. TAKHZYRO [Suspect]
     Active Substance: LANADELUMAB-FLYO
     Indication: ANGIOEDEMA
     Route: 065

REACTIONS (5)
  - Asphyxia [Unknown]
  - Swelling [Unknown]
  - Flushing [Unknown]
  - Gastrointestinal obstruction [Unknown]
  - Unresponsive to stimuli [Unknown]
